FAERS Safety Report 8003261-5 (Version None)
Quarter: 2011Q4

REPORT INFORMATION
  Report Type: 
  Country: None (occurrence: None)
  Receive Date: 20111219
  Receipt Date: 20111208
  Transmission Date: 20120403
  Serious: Yes (Death, Other)
  Sender: FDA-Public Use
  Company Number: ACO_28452_2011

PATIENT
  Sex: Female

DRUGS (5)
  1. TETRAZEPAM (TETRAZEPAM) [Concomitant]
  2. METAMIZOLE (METAMIZOLE) [Concomitant]
  3. TIZANIDINE HYDROCHLORIDE [Suspect]
     Indication: MULTIPLE SCLEROSIS
     Dosage: 2 MG, QD, ORAL
     Route: 048
     Dates: start: 20110113, end: 20110113
  4. GABAPENTIN [Concomitant]
  5. HYDROCHLOROTHIAZIDE [Concomitant]

REACTIONS (7)
  - CIRCULATORY COLLAPSE [None]
  - DIZZINESS [None]
  - PROCEDURAL COMPLICATION [None]
  - HYPOTONIA [None]
  - MULTIPLE SCLEROSIS RELAPSE [None]
  - MYOCARDIAL INFARCTION [None]
  - NAUSEA [None]
